FAERS Safety Report 19236838 (Version 1)
Quarter: 2021Q2

REPORT INFORMATION
  Report Type: Spontaneous
  Country: IT (occurrence: IT)
  Receive Date: 20210510
  Receipt Date: 20210510
  Transmission Date: 20210717
  Serious: Yes (Other)
  Sender: FDA-Public Use
  Company Number: IT-GLAXOSMITHKLINE-IT2021EME096234

PATIENT
  Sex: Female

DRUGS (1)
  1. REVINTY ELLIPTA [Suspect]
     Active Substance: FLUTICASONE FUROATE\VILANTEROL TRIFENATATE
     Indication: CHRONIC OBSTRUCTIVE PULMONARY DISEASE
     Dosage: UNK
     Dates: start: 20210430

REACTIONS (4)
  - Erythema [Recovered/Resolved]
  - Throat irritation [Recovered/Resolved]
  - Vision blurred [Recovered/Resolved]
  - Dermatitis bullous [Recovered/Resolved]
